FAERS Safety Report 7820799-1 (Version None)
Quarter: 2011Q4

REPORT INFORMATION
  Report Type: 
  Country: None (occurrence: None)
  Receive Date: 20111018
  Receipt Date: 20111012
  Transmission Date: 20120403
  Serious: Yes (Hospitalization)
  Sender: FDA-Public Use
  Company Number: FR-MERCK-1110FRA00053

PATIENT
  Age: 31 Year
  Sex: Male

DRUGS (5)
  1. CARMUSTINE [Suspect]
     Indication: MEDULLOBLASTOMA
     Route: 042
     Dates: start: 20111004, end: 20111004
  2. EMEND [Suspect]
     Indication: PREMEDICATION
     Route: 048
     Dates: start: 20111003, end: 20111003
  3. ALIZAPRIDE HYDROCHLORIDE [Suspect]
     Indication: PREMEDICATION
     Route: 042
     Dates: start: 20111003, end: 20111003
  4. VINCRISTINE SULFATE [Suspect]
     Indication: MEDULLOBLASTOMA
     Route: 042
     Dates: start: 20111004, end: 20111004
  5. ONDANSETRON [Suspect]
     Indication: PREMEDICATION
     Route: 042
     Dates: start: 20111004, end: 20111004

REACTIONS (1)
  - DYSAESTHESIA [None]
